FAERS Safety Report 14593052 (Version 1)
Quarter: 2018Q1

REPORT INFORMATION
  Report Type: Spontaneous
  Country: FR (occurrence: FR)
  Receive Date: 20180302
  Receipt Date: 20180302
  Transmission Date: 20180509
  Serious: Yes (Other)
  Sender: FDA-Public Use
  Company Number: FR-BAXTER-2018BAX006021

PATIENT
  Age: 69 Year
  Sex: Female

DRUGS (8)
  1. DEXAMETHASONE SALT NOT SPECIFIED [Suspect]
     Active Substance: DEXAMETHASONE
     Indication: ACUTE KIDNEY INJURY
     Route: 048
  2. DEXAMETHASONE SALT NOT SPECIFIED [Suspect]
     Active Substance: DEXAMETHASONE
     Route: 048
     Dates: start: 20121101
  3. DEXAMETHASONE SALT NOT SPECIFIED [Suspect]
     Active Substance: DEXAMETHASONE
     Indication: PLASMA CELL MYELOMA
     Route: 048
     Dates: start: 20121101
  4. BORTEZOMIB [Suspect]
     Active Substance: BORTEZOMIB
     Indication: PLASMA CELL MYELOMA
     Dosage: DAYS 1,4,8,11 IN 21 DAY CYCLE
     Route: 058
     Dates: start: 20121101
  5. DEXAMETHASONE SALT NOT SPECIFIED [Suspect]
     Active Substance: DEXAMETHASONE
     Route: 048
  6. ENDOXAN 1000 MG, POUDRE POUR SOLUTIONINJECTABLE [Suspect]
     Active Substance: CYCLOPHOSPHAMIDE
     Indication: ACUTE KIDNEY INJURY
     Dosage: DAY 1
     Route: 042
     Dates: start: 20121101
  7. BORTEZOMIB [Suspect]
     Active Substance: BORTEZOMIB
     Indication: ACUTE KIDNEY INJURY
     Dosage: DAYS 1,4,8,11 IN 21 DAY CYCLE
     Route: 058
     Dates: start: 20121101
  8. ENDOXAN 1000 MG, POUDRE POUR SOLUTIONINJECTABLE [Suspect]
     Active Substance: CYCLOPHOSPHAMIDE
     Indication: PLASMA CELL MYELOMA
     Dosage: DAY 1
     Route: 042
     Dates: start: 20121101

REACTIONS (7)
  - Skin lesion [Recovered/Resolved]
  - Biopsy skin abnormal [Recovered/Resolved]
  - Human herpes virus 8 test positive [Recovered/Resolved]
  - Kaposi^s sarcoma [Recovered/Resolved]
  - Papule [Recovered/Resolved]
  - Human herpesvirus 8 infection [Recovered/Resolved]
  - Macule [Recovered/Resolved]

NARRATIVE: CASE EVENT DATE: 20130201
